FAERS Safety Report 7820512-8 (Version None)
Quarter: 2011Q4

REPORT INFORMATION
  Report Type: 
  Country: None (occurrence: None)
  Receive Date: 20111018
  Receipt Date: 20111004
  Transmission Date: 20120403
  Serious: Yes (Hospitalization, Other)
  Sender: FDA-Public Use
  Company Number: US-BAYER-2010-002478

PATIENT
  Age: 32 Year
  Sex: Female
  Weight: 116.1 kg

DRUGS (7)
  1. YASMIN [Suspect]
     Indication: PREMENSTRUAL SYNDROME
     Dosage: UNK
     Dates: start: 20080401
  2. PAROXETINE HCL [Concomitant]
     Indication: DEPRESSION
     Dosage: 20 MG, UNK
     Route: 048
  3. PAROXETINE HCL [Concomitant]
     Indication: ANXIETY
  4. PAXIL [Concomitant]
  5. PRILOSEC [Concomitant]
  6. YASMIN [Suspect]
     Indication: MENSTRUATION IRREGULAR
  7. PREVACID [Concomitant]
     Indication: GASTROOESOPHAGEAL REFLUX DISEASE
     Dosage: 30 MG, UNK
     Route: 048

REACTIONS (6)
  - DYSPNOEA [None]
  - CHOLECYSTITIS [None]
  - GALLBLADDER DISORDER [None]
  - PULMONARY EMBOLISM [None]
  - PAIN [None]
  - ABDOMINAL PAIN [None]
